FAERS Safety Report 5324037-3 (Version None)
Quarter: 2007Q2

REPORT INFORMATION
  Report Type: 
  Country: None (occurrence: None)
  Receive Date: 20070514
  Receipt Date: 20070501
  Transmission Date: 20071010
  Serious: Yes (Other)
  Sender: FDA-Public Use
  Company Number: US-ELI_LILLY_AND_COMPANY-US200704000453

PATIENT
  Age: 53 Year
  Sex: Female
  Weight: 55.8 kg

DRUGS (12)
  1. ATOMOXETINE HYDROCHLORIDE [Suspect]
     Indication: ATTENTION DEFICIT/HYPERACTIVITY DISORDER
     Dosage: 40 MG, 2/D
     Route: 048
     Dates: start: 20070205, end: 20070319
  2. NAPROXEN [Concomitant]
     Indication: PAIN
     Dosage: 250 MG, 2/D
     Dates: start: 20000101
  3. MULTI-VITAMIN [Concomitant]
     Indication: PROPHYLAXIS
     Dates: start: 20020101
  4. LEXAPRO [Concomitant]
     Indication: DEPRESSION
     Dosage: 10 MG, DAILY (1/D)
     Dates: start: 20051101
  5. CREATINE [Concomitant]
     Indication: CHOREA
     Dosage: 1 G, 2/D
     Dates: start: 20051101, end: 20070319
  6. CREATINE [Concomitant]
     Dosage: 1 G, DAILY (1/D)
     Dates: start: 20070319
  7. COENZYME Q10 [Concomitant]
     Indication: CHOREA
     Dosage: 150 MG, 2/D
     Dates: start: 20051101
  8. FISH OIL [Concomitant]
     Indication: CHOREA
     Dosage: 1200 MG, 2/D
     Dates: start: 20051101
  9. LUNESTA [Concomitant]
     Indication: SLEEP DISORDER
     Dosage: 1 MG, DAILY (1/D)
     Dates: start: 20051201
  10. ABILIFY [Concomitant]
     Indication: COORDINATION ABNORMAL
     Dosage: 10 MG, DAILY (1/D)
     Dates: start: 20060801
  11. ALLEGRA-D                          /01367401/ [Concomitant]
     Indication: HYPERSENSITIVITY
     Dosage: 2 UNK, AS NEEDED
     Dates: start: 19920101, end: 20070319
  12. ALLEGRA-D                          /01367401/ [Concomitant]
     Dosage: 1 UNK, AS NEEDED
     Dates: start: 20070319

REACTIONS (1)
  - BLOOD CREATININE INCREASED [None]
